FAERS Safety Report 10789644 (Version 12)
Quarter: 2015Q3

REPORT INFORMATION
  Report Type: Report from Study
  Country: US (occurrence: US)
  Receive Date: 20150212
  Receipt Date: 20150728
  Transmission Date: 20151125
  Serious: Yes (Hospitalization)
  Sender: FDA-Public Use
  Company Number: US-009507513-1501USA010878

PATIENT
  Age: 21 Year
  Sex: Male

DRUGS (18)
  1. DIPHENHYDRAMINE HYDROCHLORIDE. [Concomitant]
     Active Substance: DIPHENHYDRAMINE HYDROCHLORIDE
     Indication: PRURITUS
     Dosage: TOTAL DAILY DOSE 25 MG, PRN
     Route: 048
     Dates: start: 20140429
  2. SINGULAIR [Concomitant]
     Active Substance: MONTELUKAST SODIUM
     Indication: HYPERSENSITIVITY
     Dosage: TOTAL DAILY DOSE: 10 MG, PRN
     Route: 048
     Dates: start: 20070903
  3. OXYCODONE [Concomitant]
     Active Substance: OXYCODONE
     Indication: CHEST PAIN
     Dosage: TOTAL DAILY DOSE: 10 MG, PRN
     Route: 048
     Dates: start: 20130709
  4. LIDOCAINE (+) PRILOCAINE [Concomitant]
     Indication: ANALGESIC THERAPY
     Dosage: TOTAL DAILY DOSE 1 APPLICATION, PRN
     Route: 061
     Dates: start: 20130627
  5. ARANESP [Concomitant]
     Active Substance: DARBEPOETIN ALFA
     Indication: ANAEMIA
     Dosage: TOTAL DAILY DOSE 500 MICROGRAM, PRN
     Route: 030
     Dates: start: 20150113
  6. PROCHLORPERAZINE MALEATE. [Concomitant]
     Active Substance: PROCHLORPERAZINE MALEATE
     Indication: NAUSEA
     Dosage: TOTAL DAILY DOSE: 10 MG, PRN
     Route: 048
     Dates: start: 20140408
  7. HYDROXYZINE HYDROCHLORIDE. [Concomitant]
     Active Substance: HYDROXYZINE HYDROCHLORIDE
     Indication: PRURITUS
     Dosage: TOTAL DAILY DOSE: 100 MG, PRN
     Route: 048
     Dates: start: 20140729
  8. CHERATUSSIN AC [Concomitant]
     Active Substance: CODEINE PHOSPHATE\GUAIFENESIN
     Indication: COUGH
     Dosage: TOTAL DAILY DOSE 8 TSP, PRN
     Route: 048
     Dates: start: 20141111
  9. OXYCONTIN [Concomitant]
     Active Substance: OXYCODONE HYDROCHLORIDE
     Indication: CHEST PAIN
     Dosage: 10 MG, BID
     Route: 048
     Dates: start: 20131023
  10. BLOOD CELLS, RED [Concomitant]
     Active Substance: HUMAN BLOOD CELLS
     Indication: ANAEMIA
     Dosage: TOTAL DAILY DOSE 2 UNIT, ONCE
     Route: 042
     Dates: start: 20150113, end: 20150113
  11. PEMBROLIZUMAB. [Suspect]
     Active Substance: PEMBROLIZUMAB
     Indication: NON-SMALL CELL LUNG CANCER
     Dosage: 10 MG/KG, Q3W
     Route: 042
     Dates: start: 20140318, end: 20141223
  12. ADVIL [Concomitant]
     Active Substance: IBUPROFEN
     Indication: INFLAMMATORY PAIN
     Dosage: TOTAL DAILY DOSE: 400 MG, PRN
     Route: 048
     Dates: start: 201402
  13. ONDANSETRON [Concomitant]
     Active Substance: ONDANSETRON
     Indication: NAUSEA
     Dosage: TOTAL DAILY DOSE 8 MG, PRN
     Route: 048
     Dates: start: 20140408
  14. BENZONATATE. [Concomitant]
     Active Substance: BENZONATATE
     Indication: COUGH
     Dosage: TOTAL DAILY DOSE: 300 MG, PRN
     Route: 048
     Dates: start: 20140804
  15. PEMBROLIZUMAB. [Suspect]
     Active Substance: PEMBROLIZUMAB
     Dosage: 10 MG/KG, Q3W
     Route: 042
     Dates: start: 20150113, end: 20150113
  16. SPIRIVA [Concomitant]
     Active Substance: TIOTROPIUM BROMIDE MONOHYDRATE
     Indication: ASTHMA
     Dosage: 18 MICROGRAM, QD
     Route: 055
     Dates: start: 20070903
  17. ALBUTEROL SULFATE. [Concomitant]
     Active Substance: ALBUTEROL SULFATE
     Indication: ASTHMA
     Dosage: TOTAL DAILY DOSE: 90 MICROGRAM, PRN, FORMULATION: INHALANT
     Route: 055
     Dates: start: 20090528
  18. ZOLPIDEM TARTRATE. [Concomitant]
     Active Substance: ZOLPIDEM TARTRATE
     Indication: INSOMNIA
     Dosage: 5 MG, QD
     Route: 048
     Dates: start: 20140819

REACTIONS (4)
  - Pneumonia [Recovered/Resolved]
  - Pneumonia aspiration [Recovered/Resolved]
  - Pneumonia [Recovered/Resolved with Sequelae]
  - Hypercalcaemia [Recovered/Resolved]

NARRATIVE: CASE EVENT DATE: 20150118
